FAERS Safety Report 23592889 (Version 1)
Quarter: 2024Q1

REPORT INFORMATION
  Report Type: Spontaneous
  Country: US (occurrence: None)
  Receive Date: 20240303
  Receipt Date: 20240303
  Transmission Date: 20240410
  Serious: No
  Sender: FDA-Public Use
  Company Number: None

PATIENT
  Age: 29 Year
  Sex: Female
  Weight: 65.7 kg

DRUGS (1)
  1. HERPECIN [Suspect]
     Active Substance: DIMETHICONE\MERADIMATE\OCTINOXATE\OCTISALATE\OXYBENZONE
     Indication: Oral herpes
     Dates: start: 20230524, end: 20230524

REACTIONS (7)
  - Paraesthesia oral [None]
  - Lip blister [None]
  - Application site vesicles [None]
  - Rash erythematous [None]
  - Pruritus [None]
  - Pain [None]
  - Erythema [None]

NARRATIVE: CASE EVENT DATE: 20230524
